FAERS Safety Report 6680119-5 (Version None)
Quarter: 2010Q2

REPORT INFORMATION
  Report Type: 
  Country: None (occurrence: None)
  Receive Date: 20100409
  Receipt Date: 20100329
  Transmission Date: 20101027
  Serious: Yes (Hospitalization)
  Sender: FDA-Public Use
  Company Number: 1000012933

PATIENT
  Age: 89 Year
  Sex: Female

DRUGS (5)
  1. NEBIVOLOL HCL [Suspect]
     Dosage: ORAL
     Route: 048
  2. DIGOXIN [Suspect]
     Dosage: 0.125 MG (0.125 MG, 1 IN 1 D), ORAL
     Route: 048
     Dates: end: 20100211
  3. PREVISCAN [Concomitant]
  4. SERESTA [Concomitant]
  5. ALLOPURINOL [Concomitant]

REACTIONS (6)
  - BRADYCARDIA [None]
  - CARDIOACTIVE DRUG LEVEL ABOVE THERAPEUTIC [None]
  - CONDUCTION DISORDER [None]
  - HYPERKALAEMIA [None]
  - PULMONARY OEDEMA [None]
  - RENAL FAILURE [None]
